FAERS Safety Report 4515623-9 (Version None)
Quarter: 2004Q4

REPORT INFORMATION
  Report Type: 
  Country: None (occurrence: None)
  Receive Date: 20041126
  Receipt Date: 20041116
  Transmission Date: 20050328
  Serious: Yes (Hospitalization)
  Sender: FDA-Public Use
  Company Number: 2004093707

PATIENT
  Sex: Female

DRUGS (13)
  1. NEURONTIN [Suspect]
     Indication: ILL-DEFINED DISORDER
     Dosage: 300 MG (100 MG, 3 IN 1 D), ORAL
     Route: 048
     Dates: start: 20040710, end: 20040722
  2. OXYCODONE HYDROCHLORIDE (OXYCODONE HYDROCHLORIDE) [Concomitant]
  3. DICLOFENAC (DICLOENAC) [Concomitant]
  4. CODEINE PHOSPHATE AND ACETAMINOPHEN [Concomitant]
  5. ALENDORNATE SODIUM (ALENDRONATE SODIUM) [Concomitant]
  6. DIAZEPAM 9DIAZEPAM) [Concomitant]
  7. PAROXETINE HCL [Concomitant]
  8. BETAHISTINE (BETAHISTINE) [Concomitant]
  9. NULYTELY (MACROGOL, POTASSIUM CHLROIDE, SODIUM BICARBONATE, SODIUM CHL [Concomitant]
  10. FLUNITRAZEPAM9FLUNITRAZEPAM) [Concomitant]
  11. NIFEDIPINE [Concomitant]
  12. FUROSEMIDE [Concomitant]
  13. FERROUS FUMARATE [Concomitant]

REACTIONS (5)
  - COAGULATION TIME PROLONGED [None]
  - DRUG INTERACTION [None]
  - HAEMATOMA [None]
  - HAEMODILUTION [None]
  - PROTHROMBIN TIME ABNORMAL [None]
